FAERS Safety Report 6359862-3 (Version None)
Quarter: 2009Q3

REPORT INFORMATION
  Report Type: 
  Country: None (occurrence: None)
  Receive Date: 20090917
  Receipt Date: 20090821
  Transmission Date: 20100115
  Serious: Yes (Death, Hospitalization)
  Sender: FDA-Public Use
  Company Number: B0593043A

PATIENT
  Age: 30 Year
  Sex: Female
  Weight: 48 kg

DRUGS (15)
  1. ZANTAC [Suspect]
     Indication: PREMEDICATION
     Dosage: 50MG PER DAY
     Route: 042
     Dates: start: 20050510, end: 20050510
  2. FLOLAN [Suspect]
     Indication: PROPHYLAXIS
     Route: 042
     Dates: start: 20050318
  3. UNKNOWN DRUG [Suspect]
     Indication: PROPHYLAXIS
     Route: 055
     Dates: start: 20050311
  4. FRAGMIN [Suspect]
     Indication: ANTICOAGULANT THERAPY
     Route: 042
     Dates: start: 20050510
  5. UNKNOWN DRUG [Suspect]
     Indication: ANTICOAGULANT THERAPY
     Route: 042
     Dates: start: 20050317
  6. FERROMIA [Suspect]
     Dosage: 50MG TWICE PER DAY
     Route: 048
     Dates: start: 20050502
  7. MIDAZOLAM HCL [Suspect]
     Indication: SEDATION
     Dosage: 3MG PER DAY
     Route: 042
     Dates: start: 20050510, end: 20050510
  8. FENTANEST [Suspect]
     Route: 042
     Dates: start: 20050510, end: 20050511
  9. UNKNOWN DRUG [Suspect]
     Indication: HYPOTONIA
     Route: 042
     Dates: start: 20050510, end: 20050510
  10. MILLISROL (JAPAN) [Suspect]
     Indication: VASODILATATION
     Route: 042
     Dates: start: 20050510
  11. DOBUTREX [Suspect]
  12. INOVAN [Suspect]
  13. PRECEDEX [Suspect]
  14. OXYGEN [Suspect]
     Dates: start: 20050311
  15. NITRIC OXIDE [Suspect]
     Dates: start: 20050316

REACTIONS (4)
  - CONDITION AGGRAVATED [None]
  - DELIVERY [None]
  - DRUG EXPOSURE DURING PREGNANCY [None]
  - RIGHT VENTRICULAR FAILURE [None]
